FAERS Safety Report 4327588-3 (Version None)
Quarter: 2004Q1

REPORT INFORMATION
  Report Type: 
  Country: None (occurrence: None)
  Receive Date: 20040325
  Receipt Date: 20040318
  Transmission Date: 20041129
  Serious: Yes (Death, Life-Threatening)
  Sender: FDA-Public Use
  Company Number: 2004UW05206

PATIENT
  Age: 83 Year
  Sex: Male

DRUGS (6)
  1. IRESSA [Suspect]
     Indication: NON-SMALL CELL LUNG CANCER
     Dosage: 250 MG QD PO
     Route: 048
     Dates: start: 20040101, end: 20040307
  2. FERROUS GLUCONATE [Concomitant]
  3. MULTI-VITAMINS [Concomitant]
  4. STOOL SOFTENER [Concomitant]
  5. NIZATIDINE [Concomitant]
  6. EPREX [Concomitant]

REACTIONS (3)
  - ASTHENIA [None]
  - NEUROLOGICAL SYMPTOM [None]
  - RENAL FAILURE [None]
